FAERS Safety Report 5871210-1 (Version None)
Quarter: 2008Q3

REPORT INFORMATION
  Report Type: 
  Country: None (occurrence: None)
  Receive Date: 20080829
  Receipt Date: 20071024
  Transmission Date: 20090109
  Serious: Yes (Hospitalization)
  Sender: FDA-Public Use
  Company Number: 2007-01033FE

PATIENT
  Age: 81 Year
  Sex: Male

DRUGS (4)
  1. LHRH (LHRH FERRING) (GONADORELIN ACETATE) [Suspect]
     Indication: DIAGNOSTIC PROCEDURE
     Dosage: 100 MCG ONCE IV
     Route: 042
  2. PROTIRELIN [Suspect]
     Indication: DIAGNOSTIC PROCEDURE
     Dosage: 200 MG ONCE IV
     Route: 042
  3. LEVODOPA () (LEVODOPA) [Suspect]
     Indication: DIAGNOSTIC PROCEDURE
     Dosage: 500 MG ONCE PO
     Route: 048
  4. SYNACTHEN (SYNACTHEN /00137801/) (TETRACOSACTIDE) [Suspect]
     Indication: DIAGNOSTIC PROCEDURE

REACTIONS (7)
  - HEADACHE [None]
  - HEMIANOPIA [None]
  - NAUSEA [None]
  - PITUITARY HAEMORRHAGE [None]
  - SOMNOLENCE [None]
  - VISION BLURRED [None]
  - VOMITING [None]
